FAERS Safety Report 8537601-5 (Version None)
Quarter: 2012Q3

REPORT INFORMATION
  Report Type: 
  Country: None (occurrence: None)
  Receive Date: 20120712
  Receipt Date: 20120628
  Transmission Date: 20120928
  Serious: Yes (Life-Threatening, Hospitalization)
  Sender: FDA-Public Use
  Company Number: 2012S1000565

PATIENT
  Age: 73 Year
  Sex: Female

DRUGS (3)
  1. ALIPZA (PITAVASTATIN) [Suspect]
     Indication: HYPERCHOLESTEROLAEMIA
     Dosage: 2 MG;1X;PO
     Route: 048
     Dates: start: 20120202, end: 20120407
  2. CO VALS [Concomitant]
  3. BROMAZEPAM [Concomitant]

REACTIONS (9)
  - FATIGUE [None]
  - URINARY TRACT INFECTION [None]
  - ANAEMIA [None]
  - HYPONATRAEMIA [None]
  - RENAL CYST [None]
  - ASTHENIA [None]
  - RENAL FAILURE [None]
  - DEHYDRATION [None]
  - METABOLIC ACIDOSIS [None]
